FAERS Safety Report 16768429 (Version 3)
Quarter: 2019Q4

REPORT INFORMATION
  Report Type: Spontaneous
  Country: JP (occurrence: JP)
  Receive Date: 20190903
  Receipt Date: 20191017
  Transmission Date: 20200122
  Serious: Yes (Hospitalization)
  Sender: FDA-Public Use
  Company Number: JP-TAKEDA-2019TJP020517

PATIENT
  Age: 91 Year
  Sex: Male

DRUGS (13)
  1. SENNA [Concomitant]
     Active Substance: SENNA LEAF\SENNOSIDES\SENNOSIDES A AND B
     Dosage: 1 GRAM, BID
     Route: 048
  2. CELESTAMINE [Concomitant]
     Active Substance: BETAMETHASONE\DEXCHLORPHENIRAMINE MALEATE
     Dosage: UNK, BID
     Route: 050
  3. LIPIDIL [Concomitant]
     Active Substance: FENOFIBRATE
     Dosage: UNK DOSAGE IS UNKNOWN
     Route: 048
  4. URIEF [Concomitant]
     Active Substance: SILODOSIN
     Dosage: 8 MILLIGRAM, BID
     Route: 050
  5. EPADEL                             /01682401/ [Concomitant]
     Active Substance: ICOSAPENT
     Dosage: DOSAGE IS UNKNOWN
     Route: 048
  6. FEBURIC [Concomitant]
     Active Substance: FEBUXOSTAT
     Dosage: 40 MILLIGRAM, QD
     Route: 050
  7. DIGOSIN [Concomitant]
     Active Substance: DIGOXIN
     Dosage: 0.125 MILLIGRAM, QD
     Route: 050
  8. ACTOS [Suspect]
     Active Substance: PIOGLITAZONE HYDROCHLORIDE
     Indication: TYPE 2 DIABETES MELLITUS
     Dosage: 15 MILLIGRAM, QD
     Route: 050
     Dates: start: 201812, end: 20190604
  9. CARBOCISTEINE [Concomitant]
     Active Substance: CARBOCYSTEINE
     Dosage: 1500 MILLIGRAM, TID
     Route: 050
  10. CARVEDILOL. [Concomitant]
     Active Substance: CARVEDILOL
     Dosage: 2.5 MILLIGRAM, QD
     Route: 050
  11. BELSOMRA [Concomitant]
     Active Substance: SUVOREXANT
     Dosage: 15 MILLIGRAM, BID
     Route: 050
  12. THEOLONG [Concomitant]
     Active Substance: THEOPHYLLINE ANHYDROUS
     Dosage: 200 MILLIGRAM, BID
     Route: 050
  13. SULPIRIDE [Concomitant]
     Active Substance: SULPIRIDE
     Dosage: 25 MILLIGRAM, QD
     Route: 050

REACTIONS (1)
  - Nephrotic syndrome [Unknown]

NARRATIVE: CASE EVENT DATE: 20190903
